FAERS Safety Report 8409047-1 (Version None)
Quarter: 2012Q2

REPORT INFORMATION
  Report Type: 
  Country: None (occurrence: None)
  Receive Date: 20120604
  Receipt Date: 20120403
  Transmission Date: 20120825
  Serious: No
  Sender: FDA-Public Use
  Company Number: US-NOVEN-12US004422

PATIENT
  Sex: Female
  Weight: 41.723 kg

DRUGS (5)
  1. LAMICTAL [Concomitant]
     Indication: AUTISM
     Dosage: UNK
     Route: 048
  2. LAMICTAL [Concomitant]
     Indication: BIPOLAR DISORDER
  3. DAYTRANA [Suspect]
     Indication: ATTENTION DEFICIT/HYPERACTIVITY DISORDER
     Dosage: 30 MG, QD
     Route: 062
     Dates: start: 20110601
  4. RISPERIDONE [Concomitant]
     Indication: BIPOLAR DISORDER
  5. RISPERIDONE [Concomitant]
     Indication: AUTISM
     Dosage: UNK
     Route: 048

REACTIONS (3)
  - DRUG ADMINISTERED AT INAPPROPRIATE SITE [None]
  - DYSKINESIA [None]
  - TIC [None]
